FAERS Safety Report 9002049 (Version 2)
Quarter: 2013Q2

REPORT INFORMATION
  Report Type: Spontaneous
  Country: US (occurrence: US)
  Receive Date: 20130108
  Receipt Date: 20130405
  Transmission Date: 20140414
  Serious: No
  Sender: FDA-Public Use
  Company Number: US-009507513-1301USA000168

PATIENT
  Age: 65 Year
  Sex: Male

DRUGS (3)
  1. PEGINTRON [Suspect]
     Indication: HEPATITIS C
     Dosage: REDIPEN
     Dates: start: 20121003
  2. REBETOL [Suspect]
     Indication: HEPATITIS C
     Dosage: UNK
     Dates: start: 20121003
  3. VICTRELIS [Suspect]
     Indication: HEPATITIS C
     Dosage: UNK
     Dates: start: 20121101

REACTIONS (8)
  - Agitation [Unknown]
  - Nervousness [Unknown]
  - Anger [Unknown]
  - Mood swings [Unknown]
  - Psychomotor hyperactivity [Unknown]
  - White blood cell count decreased [Unknown]
  - Depression [Unknown]
  - Leukopenia [Unknown]
